FAERS Safety Report 14035486 (Version 1)
Quarter: 2017Q4

REPORT INFORMATION
  Report Type: Spontaneous
  Country: DE (occurrence: DE)
  Receive Date: 20171003
  Receipt Date: 20171003
  Transmission Date: 20180321
  Serious: Yes (Hospitalization, Congenital Anomaly, Other)
  Sender: FDA-Public Use
  Company Number: DE-PFIZER INC-2017420398

PATIENT
  Sex: Male
  Weight: 3.19 kg

DRUGS (8)
  1. VENLAFAXINE HCL [Suspect]
     Active Substance: VENLAFAXINE HYDROCHLORIDE
     Dosage: 150 MG, DAILY
     Route: 064
     Dates: end: 20170312
  2. IBUPROFEN. [Concomitant]
     Active Substance: IBUPROFEN
     Indication: HEADACHE
     Dosage: UNK
     Route: 064
     Dates: start: 20160928, end: 20160929
  3. HUMINSULIN BASAL [Concomitant]
     Active Substance: INSULIN NOS
     Indication: GESTATIONAL DIABETES
     Dosage: 10 IU, DAILY
     Route: 064
  4. HUMINSULIN NORMAL [Concomitant]
     Indication: GESTATIONAL DIABETES
     Dosage: 42 IU, DAILY
     Route: 064
  5. VENLAFAXINE HCL [Suspect]
     Active Substance: VENLAFAXINE HYDROCHLORIDE
     Indication: BORDERLINE PERSONALITY DISORDER
     Dosage: 112.5 MG, DAILY
     Route: 064
     Dates: start: 20160608
  6. FOLIO FORTE [Concomitant]
     Active Substance: FOLIC ACID\VITAMINS
     Indication: PROPHYLAXIS OF NEURAL TUBE DEFECT
     Dosage: 0.8 MG, 1X/DAY, 5.2. - 18.3. GESTATIONAL WEEK
     Route: 064
  7. AMPICILLIN [Concomitant]
     Active Substance: AMPICILLIN
     Indication: STREPTOCOCCUS TEST POSITIVE
     Dosage: UNK
     Route: 064
  8. VOMEX A [Concomitant]
     Active Substance: DIMENHYDRINATE
     Indication: NAUSEA
     Dosage: UNK
     Route: 064
     Dates: start: 20160928, end: 20160929

REACTIONS (6)
  - Congenital skin dimples [Not Recovered/Not Resolved]
  - Foetal exposure during pregnancy [Unknown]
  - Apnoea [Unknown]
  - Agitation [Unknown]
  - Drug withdrawal syndrome neonatal [Recovered/Resolved]
  - Neonatal infection [Unknown]

NARRATIVE: CASE EVENT DATE: 2016
